FAERS Safety Report 16402528 (Version 1)
Quarter: 2019Q2

REPORT INFORMATION
  Report Type: Spontaneous
  Country: SE (occurrence: SE)
  Receive Date: 20190607
  Receipt Date: 20190607
  Transmission Date: 20190711
  Serious: Yes (Other)
  Sender: FDA-Public Use
  Company Number: SE-009507513-1906SWE000806

PATIENT
  Age: 76 Year
  Sex: Female

DRUGS (19)
  1. SPIRIVA RESPIMAT [Concomitant]
     Active Substance: TIOTROPIUM BROMIDE
     Dosage: 5 MICROGRAM, QD
     Route: 055
     Dates: start: 20171128
  2. BRICANYL [Concomitant]
     Active Substance: TERBUTALINE SULFATE
     Dosage: 1-2 INHALATIONS WHEN NEEDED
     Route: 055
     Dates: start: 20171127
  3. METOPROLOL. [Concomitant]
     Active Substance: METOPROLOL
     Dosage: 25 MILLIGRAM, QD
     Dates: start: 20171128
  4. SYMBICORT [Concomitant]
     Active Substance: BUDESONIDE\FORMOTEROL FUMARATE DIHYDRATE
     Dosage: 2 DOSAGE FORM, QD
     Route: 055
     Dates: start: 20171127
  5. MOVICOL [Concomitant]
     Active Substance: POLYETHYLENE GLYCOL 3350\POTASSIUM CHLORIDE\SODIUM BICARBONATE\SODIUM CHLORIDE
     Dosage: 1 SACHET WHEN NEEDED, MAXIMUM 1 SACHET PER DAY
     Route: 048
     Dates: start: 20171127
  6. FOLACIN [Concomitant]
     Dosage: 1 MILLIGRAM, QD
     Dates: start: 20171128
  7. CITALOPRAM [Concomitant]
     Active Substance: CITALOPRAM HYDROBROMIDE
     Dosage: 40 MILLIGRAM, QD
     Dates: start: 20171128
  8. WARAN [Concomitant]
     Active Substance: WARFARIN SODIUM
     Dosage: DOSED ACCORDING TO PT-INR (PROTHROMBIN TIME AND INTERNATIONAL NORMALIZED RATIO) BLOOD TEST RESULT
     Dates: start: 20180909
  9. CILAXORAL [Concomitant]
     Active Substance: SODIUM PICOSULFATE
     Dosage: 10-20 DROPS AT NIGHT WHEN NEEDED MAXIMUM 20 DROPS PER DAY
     Dates: start: 20180406
  10. TAVEGYL [Concomitant]
     Active Substance: CLEMASTINE FUMARATE
     Dosage: 1 TABLET WHEN NEEDED, MAXIMUM 2 TABLETS PER DAY
     Dates: start: 20171127
  11. DUROFERON [Concomitant]
     Active Substance: FERROUS SULFATE
     Dosage: 100 MILLIGRAM, QD
     Dates: start: 20190118
  12. PRIMPERAN [Concomitant]
     Active Substance: METOCLOPRAMIDE HYDROCHLORIDE
     Dosage: 1 TABLET WHEN NEEDED, MAXIMUM 3 TABLETS PER DAY
     Dates: start: 20171127
  13. ACETAMINOPHEN AND CODEINE [Concomitant]
     Active Substance: ACETAMINOPHEN\CODEINE PHOSPHATE
     Dosage: 1-2 TABLET(S) WHEN NEEDED, MAXIMUM 8 TABLETS PER DAY
     Dates: start: 20190409
  14. STILNOCT [Concomitant]
     Active Substance: ZOLPIDEM TARTRATE
     Dosage: HALF A TABLET WHEN NEEDED
     Dates: start: 20190211
  15. RAMIPRIL. [Concomitant]
     Active Substance: RAMIPRIL
     Dosage: 5 MILLIGRAM, QD
     Dates: start: 20180406
  16. ALENDRONATE SODIUM. [Suspect]
     Active Substance: ALENDRONATE SODIUM
     Indication: OSTEOPOROSIS
     Dosage: 70 MILLIGRAM, QW
     Dates: start: 20190409
  17. CALCICHEW D3 [Concomitant]
     Active Substance: CALCIUM\CHOLECALCIFEROL
     Dosage: 2 DOSAGE FORM, QD
     Dates: start: 20190409
  18. EMERADE [Concomitant]
     Dosage: 1 PRE-FILLED PEN WHEN NEEDED
     Route: 030
     Dates: start: 20171127
  19. PANTOPRAZOLE [Concomitant]
     Active Substance: PANTOPRAZOLE
     Dosage: 40 MILLIGRAM, QD
     Dates: start: 20190328

REACTIONS (2)
  - Dyspnoea [Unknown]
  - Cough [Unknown]

NARRATIVE: CASE EVENT DATE: 2019
